FAERS Safety Report 14900606 (Version 1)
Quarter: 2018Q2

REPORT INFORMATION
  Report Type: Spontaneous
  Country: US (occurrence: US)
  Receive Date: 20180516
  Receipt Date: 20180516
  Transmission Date: 20180711
  Serious: No
  Sender: FDA-Public Use
  Company Number: US-PFIZER INC-2018196927

PATIENT
  Sex: Male

DRUGS (1)
  1. EUCRISA [Suspect]
     Active Substance: CRISABOROLE
     Indication: ECZEMA
     Dosage: APPLYING IT AS NEEDED
     Dates: start: 201804

REACTIONS (3)
  - Penis disorder [Unknown]
  - Penile odour [Unknown]
  - Genital infection fungal [Not Recovered/Not Resolved]
